FAERS Safety Report 9428348 (Version 1)
Quarter: 2013Q3

REPORT INFORMATION
  Report Type: Report from Study
  Country: US (occurrence: US)
  Receive Date: 20130730
  Receipt Date: 20130730
  Transmission Date: 20140515
  Serious: No
  Sender: FDA-Public Use
  Company Number: US-ABBOTT-12P-163-1014040-00

PATIENT
  Age: 52 Year
  Sex: Male
  Weight: 89.89 kg

DRUGS (5)
  1. NIASPAN (COATED) [Suspect]
     Indication: HIGH DENSITY LIPOPROTEIN ABNORMAL
     Dosage: 500MG DAILY
     Route: 048
     Dates: start: 20121116
  2. NIASPAN (COATED) [Suspect]
     Indication: BLOOD TRIGLYCERIDES ABNORMAL
     Dosage: 500MG DAILY
     Route: 048
     Dates: start: 20121122, end: 20121122
  3. ATENOLOL [Concomitant]
     Indication: PRODUCT USED FOR UNKNOWN INDICATION
  4. PRAVASTATIN [Concomitant]
     Indication: PRODUCT USED FOR UNKNOWN INDICATION
  5. METOPROLOL [Concomitant]
     Indication: PRODUCT USED FOR UNKNOWN INDICATION

REACTIONS (6)
  - Painful respiration [Recovered/Resolved]
  - Pain [Recovered/Resolved]
  - Dyspnoea [Recovered/Resolved]
  - Flushing [Recovered/Resolved]
  - Feeling hot [Recovered/Resolved]
  - Paraesthesia [Recovered/Resolved]
